FAERS Safety Report 9393056 (Version 3)
Quarter: 2013Q4

REPORT INFORMATION
  Report Type: Spontaneous
  Country: US (occurrence: US)
  Receive Date: 20130710
  Receipt Date: 20131007
  Transmission Date: 20140711
  Serious: No
  Sender: FDA-Public Use
  Company Number: US-009507513-1306USA008715

PATIENT
  Age: 36 Year
  Sex: Female

DRUGS (2)
  1. NEXPLANON [Suspect]
     Indication: CONTRACEPTION
     Dosage: 68 MG ROD, EVERY THREE YEARS
     Route: 059
     Dates: start: 20130614, end: 20130614
  2. NEXPLANON [Suspect]
     Dosage: 68 MG ROD, EVERY THREE YEARS
     Route: 059
     Dates: start: 20130614

REACTIONS (2)
  - Device difficult to use [Recovered/Resolved]
  - No adverse event [Unknown]
